FAERS Safety Report 9534924 (Version 1)
Quarter: 2013Q3

REPORT INFORMATION
  Report Type: Spontaneous
  Country: KR (occurrence: KR)
  Receive Date: 20130918
  Receipt Date: 20130918
  Transmission Date: 20140515
  Serious: Yes (Hospitalization)
  Sender: FDA-Public Use
  Company Number: KR-ABBVIE-13P-090-1144119-00

PATIENT
  Age: 29 Year
  Sex: Male

DRUGS (2)
  1. ADALIMUMAB [Suspect]
     Indication: ANKYLOSING SPONDYLITIS
     Route: 058
  2. SALAZOPYRINE [Concomitant]
     Indication: ANKYLOSING SPONDYLITIS

REACTIONS (1)
  - Behcet^s syndrome [Recovered/Resolved]
